FAERS Safety Report 16807530 (Version 5)
Quarter: 2020Q1

REPORT INFORMATION
  Report Type: Spontaneous
  Country: US (occurrence: US)
  Receive Date: 20190914
  Receipt Date: 20200311
  Transmission Date: 20200409
  Serious: Yes (Death, Hospitalization, Other)
  Sender: FDA-Public Use
  Company Number: PHEH2019US037716

PATIENT
  Age: 60 Year
  Sex: Female

DRUGS (3)
  1. AFINITOR [Suspect]
     Active Substance: EVEROLIMUS
     Indication: BREAST CANCER METASTATIC
     Dosage: 10 MG, QD
     Route: 048
     Dates: start: 20190827
  2. AFINITOR [Suspect]
     Active Substance: EVEROLIMUS
     Dosage: UNK
     Route: 065
     Dates: start: 20190922, end: 20191117
  3. AFINITOR [Suspect]
     Active Substance: EVEROLIMUS
     Dosage: 10 MG, QD
     Route: 048
     Dates: start: 20190901, end: 20190911

REACTIONS (11)
  - Pneumonia [Fatal]
  - Respiratory tract infection [Unknown]
  - Respiratory failure [Fatal]
  - Contusion [Unknown]
  - Oral pain [Unknown]
  - Breast cancer metastatic [Fatal]
  - Malignant neoplasm progression [Fatal]
  - Chest discomfort [Not Recovered/Not Resolved]
  - Hypersensitivity pneumonitis [Fatal]
  - Nasopharyngitis [Not Recovered/Not Resolved]
  - Diarrhoea [Unknown]

NARRATIVE: CASE EVENT DATE: 20191111
